FAERS Safety Report 25671513 (Version 2)
Quarter: 2025Q3

REPORT INFORMATION
  Report Type: Spontaneous
  Country: EU (occurrence: EU)
  Receive Date: 20250812
  Receipt Date: 20250825
  Transmission Date: 20251021
  Serious: Yes (Other)
  Sender: NOVARTIS
  Company Number: EU-002147023-NVSC2025DE126086

PATIENT
  Sex: Female

DRUGS (2)
  1. LEQVIO [Suspect]
     Active Substance: INCLISIRAN SODIUM
     Indication: Blood cholesterol
     Route: 065
     Dates: start: 20250602
  2. ATORVASTATIN [Concomitant]
     Active Substance: ATORVASTATIN
     Indication: Blood cholesterol
     Route: 065

REACTIONS (17)
  - Pneumonitis [Unknown]
  - Dyspnoea [Recovering/Resolving]
  - Hyperhidrosis [Recovering/Resolving]
  - Chest pain [Not Recovered/Not Resolved]
  - Dizziness [Recovering/Resolving]
  - Pulmonary congestion [Recovering/Resolving]
  - Chest discomfort [Recovering/Resolving]
  - Hair growth abnormal [Unknown]
  - Asthenia [Recovering/Resolving]
  - Fatigue [Recovered/Resolved]
  - Spider vein [Unknown]
  - Oliguria [Recovered/Resolved]
  - Headache [Unknown]
  - Tendon disorder [Unknown]
  - Tendon pain [Unknown]
  - Myalgia [Unknown]
  - Weight increased [Unknown]

NARRATIVE: CASE EVENT DATE: 20250101
